FAERS Safety Report 9994128 (Version 2)
Quarter: 2014Q1

REPORT INFORMATION
  Report Type: Spontaneous
  Country: US (occurrence: US)
  Receive Date: 20140310
  Receipt Date: 20140310
  Transmission Date: 20141002
  Serious: No
  Sender: FDA-Public Use
  Company Number: US-009507513-1402USA013595

PATIENT
  Sex: 0

DRUGS (1)
  1. JANUVIA [Suspect]
     Dosage: 50 MG, TWICE DAILY
     Route: 048

REACTIONS (3)
  - Inappropriate schedule of drug administration [Unknown]
  - Drug prescribing error [Unknown]
  - No adverse event [Unknown]
